FAERS Safety Report 9911148 (Version 2)
Quarter: 2014Q1

REPORT INFORMATION
  Report Type: Spontaneous
  Country: IT (occurrence: IT)
  Receive Date: 20140219
  Receipt Date: 20140221
  Transmission Date: 20141002
  Serious: No
  Sender: FDA-Public Use
  Company Number: IT-009507513-1402ITA008437

PATIENT
  Age: 39 Year
  Sex: Female

DRUGS (6)
  1. JANUVIA [Suspect]
     Indication: TYPE 2 DIABETES MELLITUS
     Dosage: 1 UNIT DAILY
     Route: 048
     Dates: start: 20131004, end: 20131104
  2. JANUVIA [Suspect]
     Dosage: 1 UNIT DAILY
     Route: 048
     Dates: start: 2013
  3. ALLOPURINOL [Concomitant]
     Dosage: 300 MG, UNK
     Route: 048
  4. TAREG [Concomitant]
     Route: 048
  5. TRIATEC (RAMIPRIL) [Concomitant]
     Route: 048
  6. TORVAST [Concomitant]
     Route: 048

REACTIONS (2)
  - Muscle spasms [Recovering/Resolving]
  - Myalgia [Recovering/Resolving]
